FAERS Safety Report 15632688 (Version 5)
Quarter: 2019Q3

REPORT INFORMATION
  Report Type: Report from Study
  Country: None (occurrence: US)
  Receive Date: 20181119
  Receipt Date: 20190819
  Transmission Date: 20191004
  Serious: Yes (Other)
  Sender: FDA-Public Use
  Company Number: US-ABBVIE-18K-163-2555578-00

PATIENT
  Age: 52 Year
  Sex: Male

DRUGS (2)
  1. HUMIRA [Suspect]
     Active Substance: ADALIMUMAB
     Indication: ANKYLOSING SPONDYLITIS
     Route: 058
  2. HUMIRA [Suspect]
     Active Substance: ADALIMUMAB
     Indication: PSORIASIS

REACTIONS (21)
  - Skin necrosis [Recovering/Resolving]
  - Intestinal obstruction [Recovering/Resolving]
  - Diarrhoea [Recovering/Resolving]
  - Blood iron increased [Recovering/Resolving]
  - Weight decreased [Unknown]
  - Intervertebral disc protrusion [Not Recovered/Not Resolved]
  - Iron overload [Recovering/Resolving]
  - Upper respiratory tract infection [Not Recovered/Not Resolved]
  - Myalgia [Not Recovered/Not Resolved]
  - Gait disturbance [Unknown]
  - Arthralgia [Not Recovered/Not Resolved]
  - Medical device implantation [Not Recovered/Not Resolved]
  - Dysstasia [Unknown]
  - Depression [Recovering/Resolving]
  - Disturbance in attention [Recovering/Resolving]
  - Nocturia [Recovering/Resolving]
  - Sciatica [Not Recovered/Not Resolved]
  - Injection site pruritus [Recovered/Resolved]
  - Seizure [Not Recovered/Not Resolved]
  - Muscle atrophy [Not Recovered/Not Resolved]
  - Fungal skin infection [Recovering/Resolving]

NARRATIVE: CASE EVENT DATE: 20181030
